FAERS Safety Report 8568325-6 (Version None)
Quarter: 2012Q3

REPORT INFORMATION
  Report Type: 
  Country: None (occurrence: None)
  Receive Date: 20120803
  Receipt Date: 20120509
  Transmission Date: 20120928
  Serious: No
  Sender: FDA-Public Use
  Company Number: US-ABBOTT-12P-163-0934340-00

PATIENT
  Weight: 79.45 kg

DRUGS (2)
  1. NIASPAN [Suspect]
     Dates: start: 20120401, end: 20120507
  2. NIASPAN [Suspect]
     Indication: HIGH DENSITY LIPOPROTEIN DECREASED
     Dates: start: 20120401

REACTIONS (2)
  - SKIN BURNING SENSATION [None]
  - PRURITUS [None]
